FAERS Safety Report 11863462 (Version 1)
Quarter: 2015Q4

REPORT INFORMATION
  Report Type: Report from Study
  Country: US (occurrence: US)
  Receive Date: 20151223
  Receipt Date: 20151223
  Transmission Date: 20160305
  Serious: No
  Sender: FDA-Public Use
  Company Number: US-ORION CORPORATION ORION PHARMA-ENTC2014-0214

PATIENT
  Sex: Male

DRUGS (1)
  1. STALEVO [Suspect]
     Active Substance: CARBIDOPA\ENTACAPONE\LEVODOPA
     Indication: PARKINSON^S DISEASE
     Dosage: 1.5 TABLET IN EVERY 3.5 HOURS
     Route: 048

REACTIONS (5)
  - Dyspnoea [Unknown]
  - Overdose [Unknown]
  - Fatigue [Unknown]
  - Feeding disorder [Unknown]
  - Musculoskeletal stiffness [Unknown]
